FAERS Safety Report 18339175 (Version 1)
Quarter: 2020Q3

REPORT INFORMATION
  Report Type: Spontaneous
  Country: US (occurrence: US)
  Receive Date: 20200930
  Receipt Date: 20200930
  Transmission Date: 20201103
  Serious: Yes (Life-Threatening)
  Sender: FDA-Public Use
  Company Number: None

PATIENT
  Age: 62 Year
  Sex: Male
  Weight: 104 kg

DRUGS (1)
  1. PROTAMINE SULFATE (PROTAMINE SO4 10MG/ML INJ) [Suspect]
     Active Substance: PROTAMINE SULFATE
     Indication: CARDIOVASCULAR DISORDER
     Dosage: ?          OTHER FREQUENCY:UNKNOWN;OTHER ROUTE:IV?
     Dates: start: 20200914, end: 20200914

REACTIONS (3)
  - Ventricular fibrillation [None]
  - Hypotension [None]
  - Cardiac arrest [None]

NARRATIVE: CASE EVENT DATE: 20200914
